FAERS Safety Report 24282642 (Version 1)
Quarter: 2024Q3

REPORT INFORMATION
  Report Type: Other
  Country: RU (occurrence: RU)
  Receive Date: 20240904
  Receipt Date: 20240904
  Transmission Date: 20241017
  Serious: Yes (Death, Hospitalization)
  Sender: ORBION PHARMACEUTICALS
  Company Number: RU-OrBion Pharmaceuticals Private Limited-2161147

PATIENT
  Age: 33 Year
  Sex: Female

DRUGS (7)
  1. DIVALPROEX SODIUM [Suspect]
     Active Substance: DIVALPROEX SODIUM
     Indication: Status epilepticus
     Route: 065
  2. LEVETIRACETAM [Suspect]
     Active Substance: LEVETIRACETAM
     Route: 065
  3. TOPIRAMATE [Suspect]
     Active Substance: TOPIRAMATE
     Route: 065
  4. CLONAZEPAM [Suspect]
     Active Substance: CLONAZEPAM
     Route: 065
  5. BENZOBARBITAL [Suspect]
     Active Substance: BENZOBARBITAL
     Route: 065
  6. THIOPENTAL SODIUM [Suspect]
     Active Substance: THIOPENTAL SODIUM
     Route: 065
  7. LACOSAMIDE [Suspect]
     Active Substance: LACOSAMIDE
     Route: 065

REACTIONS (5)
  - Drug ineffective [Unknown]
  - Bradycardia foetal [Unknown]
  - Multiple organ dysfunction syndrome [Fatal]
  - Exposure during pregnancy [Unknown]
  - Hepatic failure [Fatal]
